FAERS Safety Report 9988758 (Version 1)
Quarter: 2013Q4

REPORT INFORMATION
  Report Type: Spontaneous
  Country: US (occurrence: None)
  Receive Date: 20131009
  Receipt Date: 20131009
  Transmission Date: 20140711
  Serious: Yes (Other)
  Sender: FDA-Public Use
  Company Number: SYM-2013-10768

PATIENT
  Age: 68 Year
  Sex: Female
  Weight: 63.5 kg

DRUGS (22)
  1. BOTOX [Suspect]
     Indication: PRODUCT USED FOR UNKNOWN INDICATION
     Dates: start: 20120725
  2. DIOVAN [Concomitant]
  3. NEXIUM [Concomitant]
  4. CRESTOR [Concomitant]
  5. FLORASTOR [Concomitant]
  6. TRIAMTERENE-HCTZ [Concomitant]
  7. AMOX-CLAV [Concomitant]
  8. DIOVAN HCT [Concomitant]
  9. METRONIDAZOLE [Concomitant]
  10. LIPITOR [Concomitant]
  11. MELOXICAM [Concomitant]
  12. NAFTIN [Concomitant]
  13. METFORMIN [Concomitant]
  14. ACTOS [Concomitant]
  15. ACTOPLUS MET [Concomitant]
  16. AMOXICILLIN [Concomitant]
  17. OXYCODONE/ACETAMINOPHEN [Concomitant]
  18. CIPROFLOXACIN [Concomitant]
  19. TAMIFLU [Concomitant]
  20. TRETINOIN [Concomitant]
  21. AZITHROMYCIN [Concomitant]
  22. CIPRO HC [Concomitant]

REACTIONS (4)
  - Swelling face [None]
  - Hypoaesthesia [None]
  - Skin mass [None]
  - Scar [None]
